FAERS Safety Report 14182511 (Version 2)
Quarter: 2017Q4

REPORT INFORMATION
  Report Type: Spontaneous
  Country: US (occurrence: US)
  Receive Date: 20171113
  Receipt Date: 20171120
  Transmission Date: 20180321
  Serious: No
  Sender: FDA-Public Use
  Company Number: US-PFIZER INC-2017484155

PATIENT
  Sex: Female
  Weight: 72.56 kg

DRUGS (2)
  1. PREMARIN [Suspect]
     Active Substance: ESTROGENS, CONJUGATED
     Indication: HOT FLUSH
  2. PREMARIN [Suspect]
     Active Substance: ESTROGENS, CONJUGATED
     Indication: HORMONE THERAPY
     Dosage: 1 DF, DAILY (1.25 ONE TABLET BY MOUTH DAILY)
     Route: 048

REACTIONS (2)
  - Depressed mood [Not Recovered/Not Resolved]
  - Laziness [Unknown]
